FAERS Safety Report 21886624 (Version 5)
Quarter: 2023Q4

REPORT INFORMATION
  Report Type: Report from Study
  Country: ES (occurrence: ES)
  Receive Date: 20230119
  Receipt Date: 20231101
  Transmission Date: 20240109
  Serious: Yes (Hospitalization, Other)
  Sender: FDA-Public Use
  Company Number: ES-009507513-2301ESP002330

PATIENT
  Age: 47 Year
  Sex: Female
  Weight: 53 kg

DRUGS (12)
  1. GEMCITABINE HYDROCHLORIDE [Suspect]
     Active Substance: GEMCITABINE HYDROCHLORIDE
     Indication: Ductal adenocarcinoma of pancreas
     Dosage: 1000 MG/M2, EVERY 3 WEEKS
     Route: 042
     Dates: start: 20221019, end: 20221026
  2. GEMCITABINE HYDROCHLORIDE [Suspect]
     Active Substance: GEMCITABINE HYDROCHLORIDE
     Dosage: 1000 MG/M2, EVERY 3 WEEKS
     Route: 042
     Dates: start: 20221116, end: 20221212
  3. PACLITAXEL [Suspect]
     Active Substance: PACLITAXEL
     Indication: Ductal adenocarcinoma of pancreas
     Dosage: 125 MG/M2, EVERY 3 WEEKS
     Route: 042
     Dates: start: 20221019, end: 20221026
  4. PACLITAXEL [Suspect]
     Active Substance: PACLITAXEL
     Dosage: 125 MG/M2, EVERY 3 WEEKS
     Route: 042
     Dates: start: 20221116, end: 20221212
  5. PEMBROLIZUMAB [Suspect]
     Active Substance: PEMBROLIZUMAB
     Indication: Ductal adenocarcinoma of pancreas
     Dosage: CYCLE 1: 200 MG, EVERY 3 WEEKS
     Route: 042
     Dates: start: 20221019, end: 20221019
  6. PEMBROLIZUMAB [Suspect]
     Active Substance: PEMBROLIZUMAB
     Dosage: CYCLE 2: 200 MG, EVERY 3 WEEKS
     Route: 042
     Dates: start: 20221109, end: 20221109
  7. PEMBROLIZUMAB [Suspect]
     Active Substance: PEMBROLIZUMAB
     Dosage: CYCLE 3: 200 MG, EVERY 3 WEEKS
     Route: 042
     Dates: start: 20221130, end: 20221130
  8. PREDNISONE [Concomitant]
     Active Substance: PREDNISONE
     Dosage: UNK
     Dates: start: 20221107
  9. INNOHEP [Concomitant]
     Active Substance: TINZAPARIN SODIUM
     Dosage: UNK
  10. BILASTINE [Concomitant]
     Active Substance: BILASTINE
     Dosage: UNK
     Dates: start: 20221021
  11. DEXAMETHASONE [Concomitant]
     Active Substance: DEXAMETHASONE
     Dosage: UNK
     Dates: start: 20221130, end: 20221212
  12. AMOXICILLIN\CLAVULANIC ACID [Concomitant]
     Active Substance: AMOXICILLIN\CLAVULANIC ACID
     Dosage: UNK
     Dates: start: 20221205, end: 20221210

REACTIONS (1)
  - Pneumonitis [Recovered/Resolved]

NARRATIVE: CASE EVENT DATE: 20221223
